FAERS Safety Report 21998579 (Version 1)
Quarter: 2023Q1

REPORT INFORMATION
  Report Type: Spontaneous
  Country: US (occurrence: US)
  Receive Date: 20230216
  Receipt Date: 20230216
  Transmission Date: 20230417
  Serious: Yes (Other)
  Sender: FDA-Public Use
  Company Number: US-AUROBINDO-AUR-APL-2023-006840

PATIENT
  Age: 63 Year
  Sex: Male

DRUGS (7)
  1. OLANZAPINE [Suspect]
     Active Substance: OLANZAPINE
     Indication: Bipolar disorder
     Dosage: 20 MILLIGRAM, ONCE A DAY
     Route: 065
     Dates: start: 201912
  2. OLANZAPINE [Suspect]
     Active Substance: OLANZAPINE
     Indication: Agitation
     Dosage: 5 MILLIGRAM, AS NECESSARY
     Route: 065
     Dates: start: 201912
  3. AVAPRITINIB [Suspect]
     Active Substance: AVAPRITINIB
     Indication: Gastrointestinal stromal tumour
     Dosage: 300 MILLIGRAM, ONCE A DAY
     Route: 065
     Dates: start: 202003
  4. AVAPRITINIB [Suspect]
     Active Substance: AVAPRITINIB
     Dosage: 200 MILLIGRAM, ONCE A DAY
     Route: 048
     Dates: start: 202003
  5. AVAPRITINIB [Suspect]
     Active Substance: AVAPRITINIB
     Dosage: 100 MILLIGRAM, ONCE A DAY
     Route: 065
     Dates: start: 202003
  6. DASATINIB [Concomitant]
     Active Substance: DASATINIB
     Indication: Gastrointestinal stromal tumour
     Dosage: UNK
     Route: 065
  7. HALOPERIDOL [Concomitant]
     Active Substance: HALOPERIDOL
     Indication: Agitation
     Dosage: UNK
     Route: 065

REACTIONS (4)
  - Encephalopathy [Unknown]
  - Dysphagia [Unknown]
  - Salivary hypersecretion [Unknown]
  - Mental status changes [Unknown]
